FAERS Safety Report 14609859 (Version 3)
Quarter: 2018Q2

REPORT INFORMATION
  Report Type: Spontaneous
  Country: US (occurrence: US)
  Receive Date: 20180307
  Receipt Date: 20180423
  Transmission Date: 20180711
  Serious: Yes (Other)
  Sender: FDA-Public Use
  Company Number: US-PFIZER INC-2018091660

PATIENT
  Age: 17 Year
  Sex: Male
  Weight: 77.11 kg

DRUGS (3)
  1. GENOTROPIN [Suspect]
     Active Substance: SOMATROPIN
     Dosage: 2.6 MG, 1X/DAY (NIGHTLY)
  2. FLINTSTONES [Concomitant]
     Dosage: UNK
  3. GENOTROPIN [Suspect]
     Active Substance: SOMATROPIN
     Indication: GROWTH HORMONE DEFICIENCY
     Dosage: 2.6 MG, 1X/DAY (NIGHTLY)
     Dates: start: 2014

REACTIONS (4)
  - Femur fracture [Recovered/Resolved]
  - Bone contusion [Recovered/Resolved]
  - Ligament sprain [Recovered/Resolved]
  - Joint injury [Recovered/Resolved]

NARRATIVE: CASE EVENT DATE: 20180203
